FAERS Safety Report 7940149-X (Version None)
Quarter: 2011Q4

REPORT INFORMATION
  Report Type: 
  Country: None (occurrence: None)
  Receive Date: 20111125
  Receipt Date: 20100625
  Transmission Date: 20120403
  Serious: Yes (Hospitalization, Other)
  Sender: FDA-Public Use
  Company Number: PHHY2010TW22186

PATIENT
  Sex: Male

DRUGS (1)
  1. GLEEVEC [Suspect]
     Indication: GASTROINTESTINAL STROMAL TUMOUR
     Dosage: 400 MG, DAILY
     Route: 048
     Dates: start: 20100122

REACTIONS (11)
  - GASTROINTESTINAL STROMAL TUMOUR [None]
  - EYELID OEDEMA [None]
  - WOUND [None]
  - WOUND COMPLICATION [None]
  - NEOPLASM MALIGNANT [None]
  - HEPATIC NEOPLASM [None]
  - HAEMOGLOBIN DECREASED [None]
  - SKIN FRAGILITY [None]
  - DISCOMFORT [None]
  - PRURITUS [None]
  - OEDEMA [None]
